FAERS Safety Report 7799274-9 (Version None)
Quarter: 2011Q4

REPORT INFORMATION
  Report Type: 
  Country: None (occurrence: None)
  Receive Date: 20111006
  Receipt Date: 20110823
  Transmission Date: 20120403
  Serious: No
  Sender: FDA-Public Use
  Company Number: US-GLAXOSMITHKLINE-A0942515A

PATIENT
  Age: 18 Year
  Sex: Male

DRUGS (2)
  1. DUAC [Suspect]
     Indication: ACNE
     Dosage: 1APP IN THE MORNING
     Route: 061
     Dates: start: 20110801
  2. VELTIN [Suspect]
     Indication: ACNE
     Dosage: 1APP AT NIGHT
     Route: 061
     Dates: start: 20110801, end: 20110823

REACTIONS (1)
  - ILL-DEFINED DISORDER [None]
